FAERS Safety Report 24959456 (Version 2)
Quarter: 2025Q3

REPORT INFORMATION
  Report Type: Report from Study
  Country: US (occurrence: US)
  Receive Date: 20250212
  Receipt Date: 20250810
  Transmission Date: 20251020
  Serious: Yes (Other)
  Sender: ALEXION PHARMACEUTICALS
  Company Number: US-AstraZeneca-2024A184699

PATIENT
  Sex: Female

DRUGS (1)
  1. ANIFROLUMAB [Suspect]
     Active Substance: ANIFROLUMAB
     Dosage: 300 MILLIGRAM, QMONTH
     Dates: start: 20240626

REACTIONS (5)
  - Lupus-like syndrome [Unknown]
  - Pneumonitis [Unknown]
  - Cough [Unknown]
  - Cough [Unknown]
  - Restless legs syndrome [Unknown]
